FAERS Safety Report 12214235 (Version 3)
Quarter: 2016Q2

REPORT INFORMATION
  Report Type: Spontaneous
  Country: US (occurrence: US)
  Receive Date: 20160328
  Receipt Date: 20160613
  Transmission Date: 20160815
  Serious: No
  Sender: FDA-Public Use
  Company Number: US-PFIZER INC-2015213606

PATIENT
  Age: 51 Year
  Sex: Female

DRUGS (16)
  1. LYRICA [Suspect]
     Active Substance: PREGABALIN
     Indication: ARTHRALGIA
     Dosage: 75 MG, 2X/DAY
     Route: 048
     Dates: start: 20150618
  2. BENAZEPRIL HCL [Concomitant]
     Active Substance: BENAZEPRIL HYDROCHLORIDE
     Dosage: 20 MG, 1X/DAY
  3. PREDNISONE. [Concomitant]
     Active Substance: PREDNISONE
     Dosage: 5 MG, 2X/DAY
     Dates: start: 20150618
  4. LYRICA [Suspect]
     Active Substance: PREGABALIN
     Indication: NEUROPATHY PERIPHERAL
     Dosage: 50 MG, UNK
     Route: 048
  5. PRISTIQ EXTENDED-RELEASE [Concomitant]
     Active Substance: DESVENLAFAXINE SUCCINATE
     Dosage: 50 MG, 1 TABLET 1/4 TAB ORALLY AT PRN ONCE A DAY
     Route: 048
  6. DICLOFENAC SODIUM. [Concomitant]
     Active Substance: DICLOFENAC SODIUM
     Dosage: 75 MG, 1X/DAY
     Route: 048
     Dates: start: 20150507
  7. MOBIC [Concomitant]
     Active Substance: MELOXICAM
     Indication: OSTEOARTHRITIS
     Dosage: UNK
  8. NORVASC [Concomitant]
     Active Substance: AMLODIPINE BESYLATE
     Indication: HYPERTENSION
     Dosage: 10 MG, 1X/DAY
  9. CYCLOBENZAPRINE HCL [Concomitant]
     Active Substance: CYCLOBENZAPRINE HYDROCHLORIDE
     Dosage: 10 MG, TWICE DAILY AS NEEDED
     Route: 048
     Dates: start: 20141029
  10. LYRICA [Suspect]
     Active Substance: PREGABALIN
     Dosage: 25 MG, 1X/DAY
     Route: 048
  11. TYLENOL WITH CODEINE [Concomitant]
     Active Substance: ACETAMINOPHEN\CODEINE PHOSPHATE
     Dosage: (1 TABLET ORAL AS NEEDED) (ACETOMINOPHEN300 MG , CODEINE30 MG)
     Route: 048
     Dates: start: 20150618
  12. LYRICA [Suspect]
     Active Substance: PREGABALIN
     Dosage: 50 MG, 2X/DAY
     Route: 048
     Dates: end: 20160208
  13. CELEBREX [Suspect]
     Active Substance: CELECOXIB
     Dosage: 200 MG, UNK
  14. TYLENOL WITH CODEINE [Suspect]
     Active Substance: ACETAMINOPHEN\CODEINE PHOSPHATE
     Dosage: UNK
  15. FLONASE [Concomitant]
     Active Substance: FLUTICASONE PROPIONATE
     Dosage: UNK, 2X/DAY (50 MCG/ACT SUSPENSION, 1 SPRAY IN EACH NOSTRIL TWICE DAILY )
     Route: 045
     Dates: start: 20141029
  16. BENAZEPRIL HCT [Concomitant]
     Indication: HYPERTENSION
     Dosage: UNK

REACTIONS (6)
  - Hypersomnia [Unknown]
  - Fatigue [Unknown]
  - Underdose [Unknown]
  - Headache [Unknown]
  - Dizziness [Recovering/Resolving]
  - Drug intolerance [Unknown]
